FAERS Safety Report 8085954-7 (Version None)
Quarter: 2012Q1

REPORT INFORMATION
  Report Type: 
  Country: None (occurrence: None)
  Receive Date: 20120128
  Receipt Date: 20110505
  Transmission Date: 20120608
  Serious: No
  Sender: FDA-Public Use
  Company Number: US-ABBOTT-11P-163-0723739-00

PATIENT
  Sex: Male
  Weight: 118.04 kg

DRUGS (3)
  1. UNKNOWN VITAMINS [Concomitant]
     Indication: VITAMIN SUPPLEMENTATION
  2. HUMIRA [Suspect]
     Indication: PSORIATIC ARTHROPATHY
     Dates: start: 20110331
  3. NAPROXIN [Concomitant]
     Indication: PAIN

REACTIONS (3)
  - PAIN [None]
  - MALAISE [None]
  - FATIGUE [None]
